FAERS Safety Report 16239431 (Version 1)
Quarter: 2019Q2

REPORT INFORMATION
  Report Type: Spontaneous
  Country: US (occurrence: US)
  Receive Date: 20190425
  Receipt Date: 20190425
  Transmission Date: 20190711
  Serious: Yes (Other)
  Sender: FDA-Public Use
  Company Number: US-VALIDUS PHARMACEUTICALS LLC-US-2019VAL000211

PATIENT

DRUGS (1)
  1. LASIX [Suspect]
     Active Substance: FUROSEMIDE
     Indication: PRODUCT USED FOR UNKNOWN INDICATION
     Dosage: UNK
     Route: 065

REACTIONS (8)
  - Fixed eruption [Unknown]
  - Rash erythematous [Unknown]
  - Rash pruritic [Unknown]
  - Leukocytosis [Unknown]
  - Drug hypersensitivity [Unknown]
  - Acute kidney injury [Unknown]
  - Skin exfoliation [Unknown]
  - Pyrexia [Unknown]
